FAERS Safety Report 4340665-6 (Version None)
Quarter: 2004Q2

REPORT INFORMATION
  Report Type: 
  Country: None (occurrence: None)
  Receive Date: 20040414
  Receipt Date: 20040322
  Transmission Date: 20050107
  Serious: Yes (Disabling, Other)
  Sender: FDA-Public Use
  Company Number: USA040259422

PATIENT
  Age: 75 Year
  Sex: Female

DRUGS (4)
  1. FORTEO [Suspect]
     Indication: OSTEOPENIA
     Dates: start: 20040205
  2. TRIAMTERENE [Concomitant]
  3. ULTRACET [Concomitant]
  4. SKELAXIN [Concomitant]

REACTIONS (9)
  - ANAL SPASM [None]
  - CONDITION AGGRAVATED [None]
  - DISABILITY [None]
  - INJECTION SITE ERYTHEMA [None]
  - INJECTION SITE STINGING [None]
  - INJECTION SITE SWELLING [None]
  - JOINT SPRAIN [None]
  - MUSCLE CRAMP [None]
  - PHARMACEUTICAL PRODUCT COMPLAINT [None]
